FAERS Safety Report 9518166 (Version 1)
Quarter: 2013Q3

REPORT INFORMATION
  Report Type: Spontaneous
  Country: US (occurrence: None)
  Receive Date: 20130910
  Receipt Date: 20130910
  Transmission Date: 20140515
  Serious: Yes (Other)
  Sender: FDA-Public Use
  Company Number: None

PATIENT
  Age: 61 Year
  Sex: Female
  Weight: 90.72 kg

DRUGS (6)
  1. OLAY TOTAL EFFECTS FRAGRANCE FREE MOISTURIZER BROAD SPECTRUM SPF 15 [Suspect]
     Indication: SUNBURN
     Dosage: APPLY LIBERALLY 15 MINS B4 SUN,  APPLIED TO A SURFACE, USUALLY THE SKIN
     Route: 061
     Dates: start: 20130616, end: 20130817
  2. OLAY TOTAL EFFECTS FRAGRANCE FREE MOISTURIZER BROAD SPECTRUM SPF 15 [Suspect]
     Indication: PROPHYLAXIS
     Dosage: APPLY LIBERALLY 15 MINS B4 SUN,  APPLIED TO A SURFACE, USUALLY THE SKIN
     Route: 061
     Dates: start: 20130616, end: 20130817
  3. PRAVACHOL [Concomitant]
  4. ALBUTEROL INHALER [Concomitant]
  5. ADVIL [Concomitant]
  6. VITAMIN D [Concomitant]

REACTIONS (4)
  - Skin disorder [None]
  - Condition aggravated [None]
  - Eyelid oedema [None]
  - Dyspnoea [None]
